FAERS Safety Report 4669911-6 (Version None)
Quarter: 2005Q2

REPORT INFORMATION
  Report Type: 
  Country: None (occurrence: None)
  Receive Date: 20050523
  Receipt Date: 20050510
  Transmission Date: 20051028
  Serious: Yes (Other)
  Sender: FDA-Public Use
  Company Number: PHNU2005DE01901

PATIENT

DRUGS (1)
  1. METOPIRONE [Suspect]

REACTIONS (1)
  - THROMBOCYTOPENIA [None]
